FAERS Safety Report 8439404-9 (Version None)
Quarter: 2012Q2

REPORT INFORMATION
  Report Type: 
  Country: None (occurrence: None)
  Receive Date: 20120615
  Receipt Date: 20120613
  Transmission Date: 20120825
  Serious: Yes (Other)
  Sender: FDA-Public Use
  Company Number: PHHY2012NZ050996

PATIENT
  Age: 59 Year
  Sex: Female

DRUGS (1)
  1. ZOLEDRONOC ACID [Suspect]
     Dosage: UNK UKN, UNK
     Route: 042
     Dates: start: 20110502

REACTIONS (3)
  - WOLFF-PARKINSON-WHITE SYNDROME [None]
  - SUPRAVENTRICULAR TACHYCARDIA [None]
  - PALPITATIONS [None]
